FAERS Safety Report 5812234-X (Version None)
Quarter: 2008Q3

REPORT INFORMATION
  Report Type: 
  Country: None (occurrence: None)
  Receive Date: 20080716
  Receipt Date: 20080703
  Transmission Date: 20090109
  Serious: Yes (Life-Threatening)
  Sender: FDA-Public Use
  Company Number: JP-MERCK-0805USA02423

PATIENT
  Age: 48 Year
  Sex: Male

DRUGS (4)
  1. ZETIA [Suspect]
     Indication: LIPIDS ABNORMAL
     Route: 048
     Dates: start: 20080419, end: 20080507
  2. ALLOPURINOL [Concomitant]
     Route: 065
     Dates: start: 20071010, end: 20080509
  3. GLIMEPIRIDE [Concomitant]
     Route: 065
     Dates: start: 20071124, end: 20080509
  4. BEZAFIBRATE [Concomitant]
     Route: 065
     Dates: start: 20071010, end: 20080509

REACTIONS (5)
  - DYSPEPSIA [None]
  - HEPATIC STEATOSIS [None]
  - LIVER DISORDER [None]
  - LYMPHOCYTE STIMULATION TEST POSITIVE [None]
  - RASH [None]
